FAERS Safety Report 15655753 (Version 3)
Quarter: 2019Q1

REPORT INFORMATION
  Report Type: Spontaneous
  Country: GB (occurrence: GB)
  Receive Date: 20181126
  Receipt Date: 20190125
  Transmission Date: 20190417
  Serious: Yes (Hospitalization, Other)
  Sender: FDA-Public Use
  Company Number: GB-CELGENEUS-GBR-20181107869

PATIENT
  Age: 71 Year
  Sex: Female
  Weight: 74 kg

DRUGS (9)
  1. TRAMADOL. [Concomitant]
     Active Substance: TRAMADOL
     Indication: BACK PAIN
     Dosage: 150 MILLIGRAM
     Route: 048
     Dates: start: 20160810
  2. REVLIMID [Suspect]
     Active Substance: LENALIDOMIDE
     Route: 048
     Dates: start: 20160824
  3. REVLIMID [Suspect]
     Active Substance: LENALIDOMIDE
     Indication: PLASMA CELL MYELOMA
     Route: 048
     Dates: start: 20160124
  4. DEXAMETHASONE. [Suspect]
     Active Substance: DEXAMETHASONE
     Indication: PLASMA CELL MYELOMA
     Route: 048
     Dates: start: 20160824
  5. PARACETAMOL [Concomitant]
     Active Substance: ACETAMINOPHEN
     Indication: BACK PAIN
     Route: 048
     Dates: start: 20160810
  6. SEPTRIN [Concomitant]
     Active Substance: SULFAMETHOXAZOLE\TRIMETHOPRIM
     Indication: ANTIBIOTIC PROPHYLAXIS
     Dosage: 960 MILLIGRAM
     Route: 048
     Dates: start: 20161019
  7. ACICLOVIR [Concomitant]
     Active Substance: ACYCLOVIR
     Indication: ANTIVIRAL PROPHYLAXIS
     Dosage: 600 MILLIGRAM
     Route: 048
     Dates: start: 20160810
  8. RANITIDINE. [Concomitant]
     Active Substance: RANITIDINE
     Indication: PROPHYLAXIS
     Dosage: 300 MILLIGRAM
     Route: 048
     Dates: start: 20160810
  9. ALLOPURINOL. [Concomitant]
     Active Substance: ALLOPURINOL
     Indication: PROPHYLAXIS
     Dosage: 300 MILLIGRAM
     Route: 048
     Dates: start: 20160801

REACTIONS (2)
  - Fracture [Recovered/Resolved]
  - Osteolysis [Recovered/Resolved]

NARRATIVE: CASE EVENT DATE: 20161116
